FAERS Safety Report 9656524 (Version 1)
Quarter: 2013Q4

REPORT INFORMATION
  Report Type: Spontaneous
  Country: CA (occurrence: None)
  Receive Date: 20131028
  Receipt Date: 20131028
  Transmission Date: 20140711
  Serious: Yes (Other)
  Sender: FDA-Public Use
  Company Number: 2013-003344

PATIENT
  Age: 54 Year
  Sex: Female

DRUGS (9)
  1. ACTONEL (RISEDRONATE SODIUM) TABLET, UNKMG [Suspect]
     Route: 048
  2. ACTEMRA (TOCILIZUMAB) 200 MG VIAL GENENTECH [Suspect]
     Indication: RHEUMATOID ARTHRITIS
     Dosage: 600 MG EVERY FOUR WEEKS
     Dates: start: 20120229, end: 20120229
  3. RITUXAN [Suspect]
     Indication: RHEUMATOID ARTHRITIS
     Dosage: 1000 MG DAY 1 AND DAY 15
     Dates: start: 20101104
  4. DIPHENYDRAMINE HCL (DIPHENYDRAMINE HYDROCHLORIDE) [Concomitant]
  5. ACETAMINOPHEN (PARACETAMOL) [Concomitant]
  6. METHYLPREDNISOLONE (METHYLPREDNISOLONE) [Concomitant]
  7. PREDNISONE (PREDNISONE) [Concomitant]
  8. CALCIUM (CALCIUM) [Concomitant]
  9. VITAMIN D /00318501/ (COLECALCIFEROL) [Concomitant]

REACTIONS (4)
  - Myocardial infarction [None]
  - Chondropathy [None]
  - Thrombosis [None]
  - Weight decreased [None]
